FAERS Safety Report 11844089 (Version 1)
Quarter: 2015Q4

REPORT INFORMATION
  Report Type: Spontaneous
  Country: DK (occurrence: DK)
  Receive Date: 20151217
  Receipt Date: 20151217
  Transmission Date: 20160305
  Serious: Yes (Life-Threatening, Hospitalization)
  Sender: FDA-Public Use
  Company Number: DK-ROCHE-1678420

PATIENT
  Age: 65 Year
  Sex: Female

DRUGS (5)
  1. KALEORID [Concomitant]
     Active Substance: POTASSIUM CHLORIDE
     Indication: MINERAL SUPPLEMENTATION
     Route: 065
  2. AVASTIN [Suspect]
     Active Substance: BEVACIZUMAB
     Indication: OVARIAN CANCER METASTATIC
     Route: 042
     Dates: start: 20150617, end: 20151123
  3. LANSOPRAZOL [Concomitant]
     Active Substance: LANSOPRAZOLE
     Indication: DYSPEPSIA
     Route: 065
  4. COZAAR [Concomitant]
     Active Substance: LOSARTAN POTASSIUM
     Indication: HYPERTENSION
     Route: 065
  5. PACLITAXEL. [Concomitant]
     Active Substance: PACLITAXEL
     Route: 065
     Dates: start: 20150617

REACTIONS (4)
  - Swelling face [Unknown]
  - Dyspnoea [Unknown]
  - Jugular vein thrombosis [Unknown]
  - Superior vena cava syndrome [Unknown]

NARRATIVE: CASE EVENT DATE: 20151119
